FAERS Safety Report 9624906 (Version 1)
Quarter: 2013Q4

REPORT INFORMATION
  Report Type: Spontaneous
  Country: US (occurrence: US)
  Receive Date: 20131016
  Receipt Date: 20131016
  Transmission Date: 20140711
  Serious: No
  Sender: FDA-Public Use
  Company Number: US-B.I. PHARMACEUTICALS,INC./RIDGEFIELD-2013-BI-31273BP

PATIENT
  Age: 75 Year
  Sex: Female
  Weight: 68 kg

DRUGS (3)
  1. COMBIVENT [Suspect]
     Indication: CHRONIC OBSTRUCTIVE PULMONARY DISEASE
     Dosage: STRENGTH: 20 MCG / 100 MCG; DAILY DOSE: 80MCG/ 400MCG
     Route: 055
     Dates: start: 20130927, end: 20130928
  2. IPRATROPIUM BROMIDE NEBS [Concomitant]
     Indication: CHRONIC OBSTRUCTIVE PULMONARY DISEASE
     Dosage: FORMULATION: SOLUTION, INHALATION
     Route: 055
  3. ALBUTEROL NEBS [Concomitant]
     Indication: CHRONIC OBSTRUCTIVE PULMONARY DISEASE
     Dosage: FORMULATION: SOLUTION, INHALATION
     Route: 055

REACTIONS (2)
  - Drug ineffective [Recovered/Resolved]
  - Product quality issue [Recovered/Resolved]
